FAERS Safety Report 9670358 (Version 2)
Quarter: 2013Q4

REPORT INFORMATION
  Report Type: Spontaneous
  Country: CA (occurrence: None)
  Receive Date: 20131104
  Receipt Date: 20131120
  Transmission Date: 20140711
  Serious: Yes (Death, Life-Threatening, Hospitalization, Other)
  Sender: FDA-Public Use
  Company Number: AMAG201300187

PATIENT
  Age: 70 Year
  Sex: Male

DRUGS (9)
  1. FERAHEME (FERUMOXYTOL) INJECTION, 510MG [Suspect]
     Indication: IRON DEFICIENCY ANAEMIA
     Dosage: 5 ML, (150 MG) SINGLE, IV PUSH
     Route: 042
     Dates: start: 20131021, end: 20131021
  2. CRESTOR (ROSUVASTATIN CALCIUM) [Concomitant]
  3. PLAVIX (CLOPIDOGREL BISULFATE) [Concomitant]
  4. ASA (ASA) [Concomitant]
  5. ACEBUTOLOL (ACEBUTOLOL) [Concomitant]
  6. VASOTEC (ENALAPRIL MALEATE) [Concomitant]
  7. NORVASC (AMLODIPINE BESILATE) [Concomitant]
  8. SPIRIVA (TIOTROPLUM BROMIDE) [Concomitant]
  9. SYMBICORT [Concomitant]

REACTIONS (12)
  - Anaphylactic reaction [None]
  - Blindness [None]
  - Unresponsive to stimuli [None]
  - Flushing [None]
  - Dyspnoea [None]
  - Pruritus generalised [None]
  - Hyperhidrosis [None]
  - Coronary artery thrombosis [None]
  - Chest pain [None]
  - Acute pulmonary oedema [None]
  - Hypotension [None]
  - Cardiac arrest [None]
